FAERS Safety Report 20148858 (Version 5)
Quarter: 2022Q1

REPORT INFORMATION
  Report Type: Report from Study
  Country: US (occurrence: US)
  Receive Date: 20211204
  Receipt Date: 20220301
  Transmission Date: 20220424
  Serious: No
  Sender: FDA-Public Use
  Company Number: US-NOVARTISTESTPH-NVSC2021US278051

PATIENT
  Age: 40 Year
  Sex: Female

DRUGS (2)
  1. ENTRESTO [Suspect]
     Active Substance: SACUBITRIL\VALSARTAN
     Indication: Product used for unknown indication
     Dosage: UNK UNK, BID(DISPERSIBLE TABLET)
     Route: 048
     Dates: start: 20211026
  2. COREG [Suspect]
     Active Substance: CARVEDILOL
     Indication: Product used for unknown indication
     Route: 065

REACTIONS (7)
  - Heart rate increased [Unknown]
  - Illness [Unknown]
  - Fatigue [Unknown]
  - Insomnia [Unknown]
  - COVID-19 [Unknown]
  - Swelling [Unknown]
  - Hypotension [Unknown]

NARRATIVE: CASE EVENT DATE: 20211130
